FAERS Safety Report 5620173-2 (Version None)
Quarter: 2008Q1

REPORT INFORMATION
  Report Type: 
  Country: None (occurrence: None)
  Receive Date: 20080208
  Receipt Date: 20080128
  Transmission Date: 20080703
  Serious: Yes (Death, Life-Threatening, Other)
  Sender: FDA-Public Use
  Company Number: JP-ROCHE-506522

PATIENT
  Age: 71 Year
  Sex: Female
  Weight: 51 kg

DRUGS (6)
  1. PEGASYS [Suspect]
     Route: 058
     Dates: start: 20070604, end: 20070618
  2. PEG-INTRON [Suspect]
     Dosage: ROUTE: INJECTABLE NOT OTHER WISE SPECIFIED
     Route: 050
     Dates: start: 20061215, end: 20070529
  3. GLAKAY [Concomitant]
     Route: 048
     Dates: start: 20041001, end: 20070623
  4. GASTER D [Concomitant]
     Route: 048
     Dates: start: 20050812, end: 20070623
  5. ZYRTEC [Concomitant]
     Route: 048
     Dates: start: 20070313, end: 20070623
  6. LOXONIN [Concomitant]
     Dosage: ORAL FORMULATION NOT OTHERWISE SPECIFIED
     Route: 048
     Dates: start: 20041001

REACTIONS (5)
  - DISSEMINATED INTRAVASCULAR COAGULATION [None]
  - LOBAR PNEUMONIA [None]
  - MULTI-ORGAN FAILURE [None]
  - RESPIRATORY FAILURE [None]
  - SEPSIS [None]
